FAERS Safety Report 19441995 (Version 1)
Quarter: 2021Q2

REPORT INFORMATION
  Report Type: Spontaneous
  Country: DE (occurrence: DE)
  Receive Date: 20210621
  Receipt Date: 20210621
  Transmission Date: 20210717
  Serious: Yes (Other)
  Sender: FDA-Public Use
  Company Number: DE-ASTRAZENECA-2021A532380

PATIENT
  Age: 77 Year
  Sex: Male

DRUGS (1)
  1. DAXAS [Suspect]
     Active Substance: ROFLUMILAST
     Indication: CHRONIC OBSTRUCTIVE PULMONARY DISEASE
     Route: 048
     Dates: start: 2011

REACTIONS (4)
  - Disturbance in attention [Unknown]
  - COVID-19 [Recovered/Resolved with Sequelae]
  - Memory impairment [Unknown]
  - Ageusia [Unknown]

NARRATIVE: CASE EVENT DATE: 202011
